FAERS Safety Report 9462774 (Version 1)
Quarter: 2013Q3

REPORT INFORMATION
  Report Type: Spontaneous
  Country: TR (occurrence: TR)
  Receive Date: 20130816
  Receipt Date: 20130816
  Transmission Date: 20140515
  Serious: Yes (Other)
  Sender: FDA-Public Use
  Company Number: TR-BAXTER-2013BAX032521

PATIENT
  Sex: 0

DRUGS (3)
  1. HOLOXAN [Suspect]
     Indication: NASOPHARYNGEAL CANCER RECURRENT
     Dosage: DAYS 1-3
     Route: 065
  2. UROMITEXAN [Suspect]
     Indication: NASOPHARYNGEAL CANCER RECURRENT
     Dosage: DAYS 1-3
     Route: 065
  3. DOXORUBICIN [Suspect]
     Indication: NASOPHARYNGEAL CANCER RECURRENT
     Dosage: DAY 1
     Route: 065

REACTIONS (1)
  - Pneumonia [Unknown]
